FAERS Safety Report 13078791 (Version 1)
Quarter: 2017Q1

REPORT INFORMATION
  Report Type: Spontaneous
  Country: US (occurrence: US)
  Receive Date: 20170102
  Receipt Date: 20170102
  Transmission Date: 20170428
  Serious: No
  Sender: FDA-Public Use
  Company Number: US-HILL DERMACEUTICALS, INC.-1061436

PATIENT
  Age: 68 Year
  Sex: Female

DRUGS (2)
  1. PANAPROPINOL [Concomitant]
  2. TOLAK [Suspect]
     Active Substance: FLUOROURACIL
     Indication: ACTINIC KERATOSIS
     Route: 061
     Dates: start: 20161122, end: 20161128

REACTIONS (1)
  - Hypersensitivity [Unknown]

NARRATIVE: CASE EVENT DATE: 20161127
